FAERS Safety Report 19861232 (Version 1)
Quarter: 2021Q3

REPORT INFORMATION
  Report Type: Spontaneous
  Country: US (occurrence: US)
  Receive Date: 20210920
  Receipt Date: 20210920
  Transmission Date: 20211014
  Serious: Yes (Other)
  Sender: FDA-Public Use
  Company Number: None

PATIENT
  Age: 80 Year
  Sex: Male

DRUGS (1)
  1. XARELTO [Suspect]
     Active Substance: RIVAROXABAN
     Dates: start: 20210830, end: 20210910

REACTIONS (6)
  - Skin discolouration [None]
  - Thrombosis [None]
  - Dizziness [None]
  - Headache [None]
  - Gait disturbance [None]
  - Arthropathy [None]

NARRATIVE: CASE EVENT DATE: 20210827
